FAERS Safety Report 19464365 (Version 1)
Quarter: 2021Q2

REPORT INFORMATION
  Report Type: Spontaneous
  Country: FR (occurrence: FR)
  Receive Date: 20210627
  Receipt Date: 20210627
  Transmission Date: 20210717
  Serious: Yes (Other)
  Sender: FDA-Public Use
  Company Number: FR-AUROBINDO-AUR-APL-2021-026710

PATIENT
  Age: 62 Year
  Sex: Male

DRUGS (1)
  1. TADALAFIL. [Suspect]
     Active Substance: TADALAFIL
     Indication: BENIGN PROSTATIC HYPERPLASIA
     Dosage: 5 MILLIGRAM, ONCE A DAY
     Route: 048
     Dates: start: 20210322, end: 20210324

REACTIONS (4)
  - Urinary retention [Recovering/Resolving]
  - Drug ineffective [Recovered/Resolved]
  - Abdominal pain [Recovering/Resolving]
  - Product substitution issue [Recovered/Resolved]

NARRATIVE: CASE EVENT DATE: 20210323
